FAERS Safety Report 8821485 (Version 1)
Quarter: 2012Q4

REPORT INFORMATION
  Report Type: 
  Country: BR (occurrence: BR)
  Receive Date: 20121002
  Receipt Date: 20121002
  Transmission Date: 20130627
  Serious: Yes (Other)
  Sender: FDA-Public Use
  Company Number: BR-JNJFOC-20120911074

PATIENT
  Age: 13 Year
  Sex: Male

DRUGS (1)
  1. TYLEX [Suspect]
     Indication: POSTOPERATIVE CARE
     Route: 048

REACTIONS (2)
  - Vision blurred [Unknown]
  - Hypotension [Unknown]
